FAERS Safety Report 10745630 (Version 1)
Quarter: 2015Q1

REPORT INFORMATION
  Report Type: Report from Study
  Country: NL (occurrence: NL)
  Receive Date: 20150128
  Receipt Date: 20150128
  Transmission Date: 20150721
  Serious: Yes (Hospitalization)
  Sender: FDA-Public Use
  Company Number: NL-AMGEN-NLDSL2015006633

PATIENT
  Age: 64 Year
  Sex: Female

DRUGS (1)
  1. XGEVA [Suspect]
     Active Substance: DENOSUMAB
     Indication: PRODUCT USED FOR UNKNOWN INDICATION
     Dosage: 120 UNK, Q4WK
     Route: 058
     Dates: start: 20141128

REACTIONS (3)
  - Malaise [Unknown]
  - Speech disorder [Unknown]
  - Dyspnoea [Unknown]
